FAERS Safety Report 7472839-X (Version None)
Quarter: 2011Q2

REPORT INFORMATION
  Report Type: 
  Country: None (occurrence: None)
  Receive Date: 20110503
  Receipt Date: 20110420
  Transmission Date: 20111010
  Serious: Yes (Hospitalization, Other)
  Sender: FDA-Public Use
  Company Number: 2010SP014788

PATIENT
  Age: 27 Year
  Sex: Female
  Weight: 88.905 kg

DRUGS (1)
  1. NUVARING [Suspect]
     Indication: CONTRACEPTION
     Dates: start: 20080101, end: 20080305

REACTIONS (16)
  - LOSS OF CONSCIOUSNESS [None]
  - THROMBOSIS [None]
  - ASTHENIA [None]
  - CARDIAC MURMUR [None]
  - VISION BLURRED [None]
  - BREAST PAIN [None]
  - EPISTAXIS [None]
  - SLEEP APNOEA SYNDROME [None]
  - OVARIAN CYST [None]
  - WEIGHT INCREASED [None]
  - TRANSIENT ISCHAEMIC ATTACK [None]
  - DEPRESSION [None]
  - IMPAIRED WORK ABILITY [None]
  - PULMONARY EMBOLISM [None]
  - BACK PAIN [None]
  - HYPERCOAGULATION [None]
